FAERS Safety Report 6548140-5 (Version None)
Quarter: 2010Q1

REPORT INFORMATION
  Report Type: 
  Country: None (occurrence: None)
  Receive Date: 20100124
  Receipt Date: 20090112
  Transmission Date: 20100710
  Serious: No
  Sender: FDA-Public Use
  Company Number: US-ALLERGAN-0900323US

PATIENT
  Sex: Male

DRUGS (3)
  1. RESTASIS [Suspect]
     Indication: DRY EYE
     Route: 047
  2. REFRESH PLUS [Suspect]
     Indication: DRY EYE
     Route: 047
  3. REFRESH P.M. [Suspect]
     Indication: DRY EYE
     Route: 047

REACTIONS (3)
  - EYE IRRITATION [None]
  - LACRIMATION INCREASED [None]
  - VISION BLURRED [None]
